FAERS Safety Report 4916349-X (Version None)
Quarter: 2006Q1

REPORT INFORMATION
  Report Type: 
  Country: None (occurrence: None)
  Receive Date: 20060217
  Receipt Date: 20051011
  Transmission Date: 20060701
  Serious: Yes (Other)
  Sender: FDA-Public Use
  Company Number: US-MERCK-0510USA06912

PATIENT
  Age: 54 Year
  Sex: Female
  Weight: 89 kg

DRUGS (31)
  1. VIOXX [Suspect]
     Indication: ARTHRITIS
     Route: 048
     Dates: start: 20001004, end: 20040615
  2. NOVOLIN [Concomitant]
     Indication: DIABETES MELLITUS
     Route: 065
  3. AMARYL [Concomitant]
     Indication: DIABETES MELLITUS
     Route: 065
  4. ZESTRIL [Concomitant]
     Indication: HYPERTENSION
     Route: 065
  5. LIPITOR [Concomitant]
     Indication: BLOOD CHOLESTEROL INCREASED
     Route: 065
  6. BEXTRA [Concomitant]
     Route: 065
     Dates: start: 20040129, end: 20041007
  7. CELEBREX [Concomitant]
     Route: 065
     Dates: start: 20000101, end: 20020101
  8. ACETAMINOPHEN AND HYDROCODONE BITARTRATE [Concomitant]
     Indication: PAIN
     Route: 065
     Dates: start: 19990101, end: 20050101
  9. TYLENOL W/ CODEINE NO. 3 [Concomitant]
     Indication: PAIN
     Route: 065
     Dates: start: 19990101, end: 20050101
  10. ACETAMINOPHEN AND PROPOXYPHENE NAPSYLATE [Concomitant]
     Indication: PAIN
     Route: 065
     Dates: start: 19990101, end: 20050101
  11. ENDOCET [Concomitant]
     Indication: PAIN
     Route: 065
     Dates: start: 19990101, end: 20050101
  12. ROXICET [Concomitant]
     Indication: PAIN
     Route: 065
     Dates: start: 19990101, end: 20050101
  13. NEURONTIN [Concomitant]
     Indication: NEURALGIA
     Route: 065
     Dates: start: 19990101, end: 20050101
  14. AVANDIA [Concomitant]
     Route: 065
     Dates: start: 19990101, end: 20050101
  15. ARTHROTEC [Concomitant]
     Route: 065
     Dates: start: 19990101, end: 20050101
  16. GLUCOPHAGE [Concomitant]
     Indication: DIABETES MELLITUS
     Route: 065
     Dates: start: 19990101, end: 20050101
  17. DETROL [Concomitant]
     Indication: HYPERTONIC BLADDER
     Route: 065
     Dates: start: 19990101, end: 20050101
  18. POTASSIUM (UNSPECIFIED) [Concomitant]
     Indication: ROUTINE HEALTH MAINTENANCE
     Route: 065
     Dates: start: 19990101, end: 20050101
  19. DEMADEX [Concomitant]
     Indication: HYPERTENSION
     Route: 065
     Dates: start: 19990101, end: 20050101
  20. DEMADEX [Concomitant]
     Indication: SWELLING
     Route: 065
     Dates: start: 19990101, end: 20050101
  21. ZOCOR [Concomitant]
     Indication: BLOOD CHOLESTEROL INCREASED
     Route: 048
     Dates: start: 19990101, end: 20050101
  22. PRINIVIL [Concomitant]
     Route: 065
     Dates: start: 19990101, end: 20050101
  23. ULTRAM [Concomitant]
     Indication: PAIN
     Route: 065
     Dates: start: 19990101, end: 20050101
  24. APRI [Concomitant]
     Route: 065
     Dates: start: 19990101, end: 20050101
  25. CLINDAMYCIN HYDROCHLORIDE [Concomitant]
     Route: 065
     Dates: start: 19990101, end: 20050101
  26. [THERAPY UNSPECIFIED] [Concomitant]
     Route: 065
     Dates: start: 19990101, end: 20050101
  27. DECADRON [Concomitant]
     Route: 065
     Dates: start: 19990101, end: 20050101
  28. DIFLUCAN [Concomitant]
     Route: 065
     Dates: start: 19990101, end: 20050101
  29. LEVAQUIN [Concomitant]
     Route: 065
     Dates: start: 19990101, end: 20050101
  30. SULFAMETHOXAZOLE [Concomitant]
     Route: 065
     Dates: start: 19990101, end: 20050101
  31. HYDROCHLOROTHIAZIDE [Concomitant]
     Route: 065

REACTIONS (4)
  - CEREBROVASCULAR ACCIDENT [None]
  - HYPOAESTHESIA [None]
  - MYOCARDIAL INFARCTION [None]
  - SWELLING [None]
